FAERS Safety Report 23054118 (Version 2)
Quarter: 2023Q4

REPORT INFORMATION
  Report Type: Spontaneous
  Country: US (occurrence: US)
  Receive Date: 20231011
  Receipt Date: 20231016
  Transmission Date: 20240110
  Serious: No
  Sender: FDA-Public Use
  Company Number: US-AMGEN-USASP2023181029

PATIENT
  Sex: Female

DRUGS (2)
  1. REPATHA [Suspect]
     Active Substance: EVOLOCUMAB
     Indication: Blood cholesterol abnormal
     Route: 065
  2. INSULIN NOS [Concomitant]
     Active Substance: INSULIN NOS
     Dosage: 140 MILLIGRAM, Q2WK
     Dates: start: 2020

REACTIONS (1)
  - Product administration interrupted [Unknown]
